FAERS Safety Report 5674612-1 (Version None)
Quarter: 2008Q1

REPORT INFORMATION
  Report Type: 
  Country: None (occurrence: None)
  Receive Date: 20080320
  Receipt Date: 20080313
  Transmission Date: 20080703
  Serious: Yes (Other)
  Sender: FDA-Public Use
  Company Number: US-JNJFOC-20080303759

PATIENT
  Sex: Female
  Weight: 63.5 kg

DRUGS (1)
  1. ULTRAM [Suspect]
     Indication: PAIN
     Route: 048

REACTIONS (1)
  - HYPERTENSION [None]
